FAERS Safety Report 7182375-6 (Version None)
Quarter: 2010Q4

REPORT INFORMATION
  Report Type: 
  Country: None (occurrence: None)
  Receive Date: 20101221
  Receipt Date: 20100512
  Transmission Date: 20110411
  Serious: No
  Sender: FDA-Public Use
  Company Number: US-AMGEN-TCS407839

PATIENT

DRUGS (9)
  1. ENBREL [Suspect]
     Indication: PSORIASIS
     Dosage: 50 MG, QWK
     Route: 058
     Dates: end: 20100401
  2. ACITRETIN [Concomitant]
     Dosage: UNK UNK, UNK
     Dates: start: 20050701
  3. OMEPRAZOLE [Concomitant]
  4. ATENOLOL [Concomitant]
  5. TRAMADOL [Concomitant]
  6. GLIPIZIDE [Concomitant]
  7. LORATADINE [Concomitant]
  8. HYDROXYZINE [Concomitant]
  9. FELODIPINE [Concomitant]

REACTIONS (1)
  - TUBERCULIN TEST POSITIVE [None]
